FAERS Safety Report 10795819 (Version 3)
Quarter: 2015Q2

REPORT INFORMATION
  Report Type: Spontaneous
  Country: US (occurrence: US)
  Receive Date: 20150216
  Receipt Date: 20150520
  Transmission Date: 20150821
  Serious: No
  Sender: FDA-Public Use
  Company Number: US-009507513-1502USA004152

PATIENT
  Age: 42 Year
  Sex: Male

DRUGS (2)
  1. CRESTOR [Concomitant]
     Active Substance: ROSUVASTATIN CALCIUM
     Dosage: UNK
  2. GRASTEK [Suspect]
     Active Substance: PHLEUM PRATENSE POLLEN
     Indication: SEASONAL ALLERGY
     Dosage: STRENGHT: 2800 BIOEQUIVALENT ALLERGY UNIT (BAU) DOSE: 2800 BAU ONCE A DAY  (1DF QD)
     Route: 060
     Dates: start: 20150202, end: 20150203

REACTIONS (2)
  - Swelling [Recovering/Resolving]
  - Speech disorder [Recovering/Resolving]

NARRATIVE: CASE EVENT DATE: 20150202
